FAERS Safety Report 8894282 (Version 1)
Quarter: 2012Q4

REPORT INFORMATION
  Report Type: 
  Country: US (occurrence: US)
  Receive Date: 20121108
  Receipt Date: 20121108
  Transmission Date: 20130627
  Serious: No
  Sender: FDA-Public Use
  Company Number: US-009507513-1211USA002992

PATIENT
  Age: 89 Year
  Sex: Female

DRUGS (1)
  1. NITRO-DUR [Suspect]

REACTIONS (1)
  - Pruritus [Unknown]
